FAERS Safety Report 11331381 (Version 2)
Quarter: 2015Q3

REPORT INFORMATION
  Report Type: Report from Study
  Country: FR (occurrence: FR)
  Receive Date: 20150803
  Receipt Date: 20150806
  Transmission Date: 20151125
  Serious: No
  Sender: FDA-Public Use
  Company Number: FR-JNJFOC-20141213196

PATIENT
  Sex: Male
  Weight: 78 kg

DRUGS (17)
  1. LINEZOLID. [Concomitant]
     Active Substance: LINEZOLID
     Indication: TUBERCULOSIS
     Route: 065
  2. AMIKACIN [Concomitant]
     Active Substance: AMIKACIN
     Indication: TUBERCULOSIS
     Route: 065
  3. AMIKACIN [Concomitant]
     Active Substance: AMIKACIN
     Indication: TUBERCULOSIS
     Route: 042
  4. PASER [Concomitant]
     Active Substance: AMINOSALICYLIC ACID
     Indication: TUBERCULOSIS
     Dosage: IN THE MORNING AND IN THE EVENING
     Route: 065
  5. ETHAMBUTOL [Concomitant]
     Active Substance: ETHAMBUTOL HYDROCHLORIDE
     Indication: TUBERCULOSIS
     Route: 065
  6. LYSANXIA [Concomitant]
     Active Substance: PRAZEPAM
     Route: 065
  7. PASER [Concomitant]
     Active Substance: AMINOSALICYLIC ACID
     Indication: TUBERCULOSIS
     Dosage: 4G IN THE MORNING. 8 G IN THE EVENING
     Route: 065
  8. ZYVOXID [Concomitant]
     Active Substance: LINEZOLID
     Indication: TUBERCULOSIS
     Route: 065
  9. SPECIAFOLDINE [Concomitant]
     Active Substance: FOLIC ACID
     Dosage: 1-1-2
     Route: 065
  10. CYCLOSERINE. [Concomitant]
     Active Substance: CYCLOSERINE
     Indication: TUBERCULOSIS
     Route: 065
  11. TMC207 [Suspect]
     Active Substance: BEDAQUILINE
     Indication: TUBERCULOSIS
     Route: 065
     Dates: start: 20140502
  12. SERESTA [Concomitant]
     Active Substance: OXAZEPAM
     Dosage: 1-1-1
     Route: 065
  13. BECILAN [Concomitant]
     Active Substance: PYRIDOXINE
     Route: 065
  14. CYCLOSERINE. [Concomitant]
     Active Substance: CYCLOSERINE
     Indication: TUBERCULOSIS
     Route: 065
  15. LOXAPAC [Concomitant]
     Active Substance: LOXAPINE SUCCINATE
     Dosage: 1-1-2
     Route: 065
  16. VENLAFAXINE [Concomitant]
     Active Substance: VENLAFAXINE HYDROCHLORIDE
     Route: 065
  17. GRANUPAS [Concomitant]
     Indication: TUBERCULOSIS
     Dosage: 4G IN THE MORNING 8 G IN THE EVENING
     Route: 065

REACTIONS (1)
  - Tuberculosis [Unknown]
